FAERS Safety Report 8339684-4 (Version None)
Quarter: 2012Q2

REPORT INFORMATION
  Report Type: 
  Country: None (occurrence: None)
  Receive Date: 20120502
  Receipt Date: 20120417
  Transmission Date: 20120825
  Serious: Yes (Other)
  Sender: FDA-Public Use
  Company Number: FURO20120003

PATIENT
  Age: 58 Year
  Sex: Female
  Weight: 41 kg

DRUGS (1)
  1. FUROSEMIDE [Suspect]
     Indication: OEDEMA PERIPHERAL
     Dosage: 120 MG

REACTIONS (8)
  - PROTEINURIA [None]
  - HYPERCALCIURIA [None]
  - RENAL CYST [None]
  - RENAL IMPAIRMENT [None]
  - BLOOD POTASSIUM DECREASED [None]
  - NEPHROCALCINOSIS [None]
  - HYPOKALAEMIA [None]
  - HAEMATURIA [None]
